FAERS Safety Report 6258682-8 (Version None)
Quarter: 2009Q3

REPORT INFORMATION
  Report Type: 
  Country: None (occurrence: None)
  Receive Date: 20090707
  Receipt Date: 20090629
  Transmission Date: 20100115
  Serious: Yes (Other)
  Sender: FDA-Public Use
  Company Number: B0579090A

PATIENT
  Age: 41 Year
  Sex: Female

DRUGS (4)
  1. ALLI [Suspect]
     Dosage: 3CAP PER DAY
     Route: 065
     Dates: start: 20090602, end: 20090604
  2. VENTOLIN [Concomitant]
     Indication: ASTHMA
     Route: 065
  3. BROMAZEPAM [Concomitant]
     Indication: ANXIETY
  4. MULTIVITAMIN SUPPLEMENT [Concomitant]
     Dates: start: 20090602

REACTIONS (3)
  - ASTHMA [None]
  - BRONCHOSPASM [None]
  - DYSPNOEA [None]
